FAERS Safety Report 4376706-X (Version None)
Quarter: 2004Q2

REPORT INFORMATION
  Report Type: 
  Country: None (occurrence: None)
  Receive Date: 20040608
  Receipt Date: 20040526
  Transmission Date: 20050107
  Serious: Yes (Death)
  Sender: FDA-Public Use
  Company Number: US-JNJFOC-20040506353

PATIENT
  Sex: Male

DRUGS (2)
  1. REMICADE [Suspect]
     Indication: CROHN'S DISEASE
     Dosage: INTRAVENOUS
     Route: 042
     Dates: start: 20040522
  2. STEROIDS(CORTICOSTEROID NOS) [Suspect]
     Indication: CROHN'S DISEASE

REACTIONS (2)
  - DRUG INTERACTION [None]
  - STAPHYLOCOCCAL SEPSIS [None]
